FAERS Safety Report 8371902-9 (Version None)
Quarter: 2012Q2

REPORT INFORMATION
  Report Type: 
  Country: None (occurrence: None)
  Receive Date: 20120518
  Receipt Date: 20120511
  Transmission Date: 20120825
  Serious: Yes (Hospitalization)
  Sender: FDA-Public Use
  Company Number: JP-ROCHE-1062915

PATIENT
  Sex: Female
  Weight: 47.4 kg

DRUGS (12)
  1. LULICONAZOLE [Concomitant]
     Indication: TINEA PEDIS
     Dosage: PROPER QUANTITY/SINGLE USE BEGINNING OF DOSAGE DAY: TRIAL PREINITIATION-
     Route: 061
  2. MOHRUS TAPE [Concomitant]
     Indication: RHEUMATOID ARTHRITIS
     Route: 061
     Dates: start: 20111207
  3. ACTEMRA [Suspect]
     Indication: RHEUMATOID ARTHRITIS
     Route: 058
     Dates: start: 20101117, end: 20120411
  4. LANSOPRAZOLE [Concomitant]
     Indication: GASTRITIS
     Dosage: BEGINNING OF DOSAGE DAY: TRIAL PREINITIATION-
     Route: 048
  5. IMIDAPRIL HYDROCHLORIDE [Concomitant]
     Indication: ATRIAL FIBRILLATION
     Dosage: BEGINNING OF DOSAGE DAY: TRIAL PREINITIATION-
     Route: 048
  6. ACTEMRA [Suspect]
     Route: 042
     Dates: start: 20100602
  7. LOXONIN [Concomitant]
     Indication: RHEUMATOID ARTHRITIS
     Dosage: BEGINNING OF DOSAGE DAY: TRIAL PREINITIATION-
     Route: 048
  8. LOXONIN [Concomitant]
     Route: 061
  9. SUNRYTHM [Concomitant]
     Indication: ATRIAL FIBRILLATION
     Dosage: SINGLE USE BEGINNING OF DOSAGE DAY: TRIAL PREINITIATION-
     Route: 048
  10. MYSER [Concomitant]
     Indication: WOUND
     Route: 061
     Dates: start: 20111227
  11. CESFALKO [Concomitant]
     Indication: GASTRITIS
     Dosage: BEGINNING OF DOSAGE DAY: TRIAL PREINITIATION-
     Route: 048
  12. PLACEBO [Suspect]
     Indication: RHEUMATOID ARTHRITIS
     Route: 058
     Dates: start: 20100602

REACTIONS (1)
  - OCCULT BLOOD POSITIVE [None]
